FAERS Safety Report 10570667 (Version 1)
Quarter: 2014Q4

REPORT INFORMATION
  Report Type: Spontaneous
  Country: US (occurrence: None)
  Receive Date: 20141104
  Receipt Date: 20141104
  Transmission Date: 20150529
  Serious: Yes (Life-Threatening, Hospitalization)
  Sender: FDA-Public Use
  Company Number: None

PATIENT
  Age: 56 Year
  Sex: Male
  Weight: 99.79 kg

DRUGS (3)
  1. MEDI4736 [Suspect]
     Active Substance: DURVALUMAB
     Indication: METASTATIC MALIGNANT MELANOMA
     Route: 042
     Dates: start: 20140926
  2. DABRAFENIB [Suspect]
     Active Substance: DABRAFENIB
     Indication: METASTATIC MALIGNANT MELANOMA
     Route: 048
     Dates: start: 20140926, end: 20141004
  3. TRAMETINIB [Suspect]
     Active Substance: TRAMETINIB
     Indication: METASTATIC MALIGNANT MELANOMA
     Route: 048
     Dates: start: 20140926, end: 20141004

REACTIONS (11)
  - Hypotension [None]
  - Blast cells absent [None]
  - Multi-organ failure [None]
  - Red blood cell schistocytes present [None]
  - Shift to the left [None]
  - Thrombocytopenia [None]
  - Pyrexia [None]
  - Disseminated intravascular coagulation [None]
  - Normochromic normocytic anaemia [None]
  - Neutrophilia [None]
  - Sepsis [None]

NARRATIVE: CASE EVENT DATE: 20141005
